FAERS Safety Report 4489581-X (Version None)
Quarter: 2004Q4

REPORT INFORMATION
  Report Type: 
  Country: None (occurrence: None)
  Receive Date: 20041026
  Receipt Date: 20041008
  Transmission Date: 20050328
  Serious: Yes (Hospitalization)
  Sender: FDA-Public Use
  Company Number: EWC041040966

PATIENT
  Age: 45 Year
  Sex: Female

DRUGS (6)
  1. ZYPREXA [Suspect]
     Indication: SCHIZOPHRENIA
     Dosage: 5 MG
     Dates: start: 20040709, end: 20040912
  2. LORAZEPAM [Concomitant]
  3. ISOPTIN [Concomitant]
  4. PANTOPRAZOLE SODIUM [Concomitant]
  5. KALIORAL [Concomitant]
  6. NEURONTIN FORTE [Concomitant]

REACTIONS (4)
  - FLUID IMBALANCE [None]
  - LIVER FUNCTION TEST ABNORMAL [None]
  - MALNUTRITION [None]
  - RESPIRATORY FAILURE [None]
